FAERS Safety Report 17856006 (Version 1)
Quarter: 2020Q2

REPORT INFORMATION
  Report Type: Spontaneous
  Country: US (occurrence: US)
  Receive Date: 20200603
  Receipt Date: 20200603
  Transmission Date: 20200714
  Serious: No
  Sender: FDA-Public Use
  Company Number: US-BTG-201900107

PATIENT
  Age: 19 Year
  Sex: Male

DRUGS (1)
  1. VORAXAZE [Suspect]
     Active Substance: GLUCARPIDASE
     Indication: TOXICITY TO VARIOUS AGENTS
     Dosage: AT A DOSE OF 20 UNITS/KG
     Route: 065

REACTIONS (2)
  - Laboratory test interference [Unknown]
  - Underdose [Unknown]
